FAERS Safety Report 12596557 (Version 5)
Quarter: 2016Q4

REPORT INFORMATION
  Report Type: Report from Study
  Country: CO (occurrence: CO)
  Receive Date: 20160726
  Receipt Date: 20161214
  Transmission Date: 20170207
  Serious: Yes (Other)
  Sender: FDA-Public Use
  Company Number: CO-ROCHE-1800932

PATIENT
  Age: 60 Year
  Sex: Female

DRUGS (8)
  1. OMALIZUMAB [Suspect]
     Active Substance: OMALIZUMAB
     Route: 058
     Dates: end: 20160831
  2. OLOPATADINE [Concomitant]
     Active Substance: OLOPATADINE
     Indication: CONJUNCTIVITIS
     Dosage: 1 DROP IN EACH EYE
     Route: 047
     Dates: start: 20110120
  3. CARBOXYMETHYLCELLULOSE [Concomitant]
     Active Substance: CARBOXYMETHYLCELLULOSE
     Indication: CONJUNCTIVITIS
     Dosage: 1 DRP (EACH EYE), QIT
     Route: 047
     Dates: start: 20110120
  4. OMALIZUMAB [Suspect]
     Active Substance: OMALIZUMAB
     Dosage: 2 VIALS OF 150 MG
     Route: 058
     Dates: start: 20160812
  5. MONTELUKAST [Concomitant]
     Active Substance: MONTELUKAST SODIUM
     Indication: ASTHMA
     Route: 065
     Dates: start: 2009
  6. OMALIZUMAB [Suspect]
     Active Substance: OMALIZUMAB
     Indication: ASTHMA
     Route: 058
     Dates: start: 201103
  7. OMALIZUMAB [Suspect]
     Active Substance: OMALIZUMAB
     Route: 058
     Dates: start: 20160629, end: 20160629
  8. BUDESONIDE/FORMOTEROL [Concomitant]
     Active Substance: BUDESONIDE\FORMOTEROL
     Indication: ASTHMA
     Route: 065
     Dates: start: 2009

REACTIONS (16)
  - Injection site cellulitis [Recovered/Resolved]
  - Injection site induration [Not Recovered/Not Resolved]
  - Lymphocyte count decreased [Unknown]
  - Red blood cell sedimentation rate increased [Unknown]
  - Injection site warmth [Not Recovered/Not Resolved]
  - Purulent discharge [Not Recovered/Not Resolved]
  - Injection site erythema [Not Recovered/Not Resolved]
  - Injection site pain [Not Recovered/Not Resolved]
  - Neutrophil count increased [Unknown]
  - Abscess [Not Recovered/Not Resolved]
  - Abdominal wall abscess [Not Recovered/Not Resolved]
  - Haematocrit decreased [Unknown]
  - Pyrexia [Recovered/Resolved]
  - Cellulitis [Recovered/Resolved]
  - Application site haemorrhage [Unknown]
  - Erythema [Recovered/Resolved]

NARRATIVE: CASE EVENT DATE: 20160630
